FAERS Safety Report 12255692 (Version 2)
Quarter: 2016Q2

REPORT INFORMATION
  Report Type: Report from Study
  Country: CA (occurrence: CA)
  Receive Date: 20160412
  Receipt Date: 20160512
  Transmission Date: 20160815
  Serious: Yes (Hospitalization, Other)
  Sender: FDA-Public Use
  Company Number: CA-ROCHE-1682583

PATIENT
  Sex: Female

DRUGS (15)
  1. ORENCIA [Concomitant]
     Active Substance: ABATACEPT
     Dosage: ONGOING, WILL NEED WASHOUT
     Route: 065
  2. PREDNISONE. [Concomitant]
     Active Substance: PREDNISONE
     Dosage: HIGH DOSES
     Route: 065
  3. ASAPHEN [Concomitant]
     Active Substance: ASPIRIN
  4. METFORMIN [Concomitant]
     Active Substance: METFORMIN HYDROCHLORIDE
  5. SYNTHROID [Concomitant]
     Active Substance: LEVOTHYROXINE SODIUM
  6. HUMIRA [Suspect]
     Active Substance: ADALIMUMAB
     Indication: PRODUCT USED FOR UNKNOWN INDICATION
     Route: 065
  7. RISEDRONATE [Concomitant]
     Active Substance: RISEDRONATE SODIUM
  8. FUROSEMIDE. [Concomitant]
     Active Substance: FUROSEMIDE
  9. ACTEMRA [Suspect]
     Active Substance: TOCILIZUMAB
     Indication: RHEUMATOID ARTHRITIS
     Route: 058
     Dates: start: 20151021, end: 201601
  10. CYCLOPHOSPHAMIDE. [Concomitant]
     Active Substance: CYCLOPHOSPHAMIDE
  11. LASIX [Concomitant]
     Active Substance: FUROSEMIDE
  12. CELEBREX [Concomitant]
     Active Substance: CELECOXIB
  13. CARBOCAL D [Concomitant]
     Active Substance: CALCIUM\VITAMIN D
  14. PANTOLOC [Concomitant]
     Active Substance: PANTOPRAZOLE SODIUM
  15. VITAMIN B12 [Concomitant]
     Active Substance: CYANOCOBALAMIN

REACTIONS (6)
  - Diabetes mellitus [Unknown]
  - Oedema peripheral [Not Recovered/Not Resolved]
  - Rheumatoid arthritis [Not Recovered/Not Resolved]
  - Nasopharyngitis [Not Recovered/Not Resolved]
  - Vasculitis [Unknown]
  - Drug ineffective [Unknown]
